FAERS Safety Report 6512527-7 (Version None)
Quarter: 2009Q4

REPORT INFORMATION
  Report Type: 
  Country: None (occurrence: None)
  Receive Date: 20091222
  Receipt Date: 20091214
  Transmission Date: 20100525
  Serious: Yes (Hospitalization)
  Sender: FDA-Public Use
  Company Number: BE-ABBOTT-09P-013-0614273-00

PATIENT
  Sex: Male

DRUGS (3)
  1. LUCRIN TRIDEPOT [Suspect]
     Indication: PROSTATE CANCER
  2. UNSPECIFIED HEART MEDICATION [Concomitant]
     Indication: DRUG USE FOR UNKNOWN INDICATION
  3. INSULIN [Concomitant]
     Indication: DRUG USE FOR UNKNOWN INDICATION

REACTIONS (1)
  - CARDIAC FIBRILLATION [None]
